FAERS Safety Report 10790860 (Version 1)
Quarter: 2015Q1

REPORT INFORMATION
  Report Type: Spontaneous
  Country: US (occurrence: US)
  Receive Date: 20150212
  Receipt Date: 20150212
  Transmission Date: 20150721
  Serious: Yes (Hospitalization, Disabling, Other)
  Sender: FDA-Public Use
  Company Number: US-ABBVIE-15P-163-1344016-00

PATIENT
  Age: 43 Year
  Sex: Female

DRUGS (1)
  1. SYNTHROID [Suspect]
     Active Substance: LEVOTHYROXINE SODIUM
     Indication: THYROIDECTOMY
     Route: 065
     Dates: start: 199604, end: 20150131

REACTIONS (8)
  - General physical health deterioration [Not Recovered/Not Resolved]
  - Myocardial infarction [Recovered/Resolved]
  - Myocardial infarction [Recovered/Resolved]
  - Coronary arterial stent insertion [Unknown]
  - Physical disability [Unknown]
  - Gait disturbance [Not Recovered/Not Resolved]
  - Drug dose omission [Not Recovered/Not Resolved]
  - Anxiety [Unknown]

NARRATIVE: CASE EVENT DATE: 199604
